FAERS Safety Report 4353527-5 (Version None)
Quarter: 2004Q2

REPORT INFORMATION
  Report Type: 
  Country: None (occurrence: None)
  Receive Date: 20040430
  Receipt Date: 20040419
  Transmission Date: 20050107
  Serious: Yes (Disabling)
  Sender: FDA-Public Use
  Company Number: 2004GB00940

PATIENT
  Age: 83 Year
  Sex: Female
  Weight: 77.5 kg

DRUGS (4)
  1. NEXIUM [Suspect]
     Indication: HELICOBACTER INFECTION
     Dosage: 40 MG PO
     Route: 048
     Dates: start: 20040207, end: 20040209
  2. ZOPICLONE [Concomitant]
  3. TYLEX [Concomitant]
  4. FUROSEMIDE [Concomitant]

REACTIONS (4)
  - GAIT DISTURBANCE [None]
  - HEADACHE [None]
  - PARKINSONISM [None]
  - TREMOR [None]
